FAERS Safety Report 4755423-8 (Version None)
Quarter: 2005Q3

REPORT INFORMATION
  Report Type: 
  Country: None (occurrence: None)
  Receive Date: 20050826
  Receipt Date: 20050826
  Transmission Date: 20060218
  Serious: No
  Sender: FDA-Public Use
  Company Number: None

PATIENT
  Sex: Female
  Weight: 93.3 kg

DRUGS (1)
  1. CETUXIMAB  250MG/M2  BMS [Suspect]
     Indication: RECTAL CANCER
     Dosage: 520MG  WEEKLY X 9 IV
     Route: 042
     Dates: start: 20050711, end: 20050822

REACTIONS (1)
  - DIARRHOEA [None]
